FAERS Safety Report 7475468-7 (Version None)
Quarter: 2011Q2

REPORT INFORMATION
  Report Type: 
  Country: None (occurrence: None)
  Receive Date: 20110512
  Receipt Date: 20110502
  Transmission Date: 20111010
  Serious: Yes (Other)
  Sender: FDA-Public Use
  Company Number: PHHY2011CA26525

PATIENT
  Sex: Female

DRUGS (2)
  1. CELECOXIB [Concomitant]
  2. ILARIS [Suspect]
     Indication: OSTEOMYELITIS CHRONIC
     Dosage: 150 MG
     Route: 058
     Dates: start: 20101116

REACTIONS (6)
  - WOUND SECRETION [None]
  - INFECTION [None]
  - PAIN OF SKIN [None]
  - PSORIASIS [None]
  - FLUCTUANCE [None]
  - PUSTULAR PSORIASIS [None]
